FAERS Safety Report 9523848 (Version 1)
Quarter: 2013Q1

REPORT INFORMATION
  Report Type: Spontaneous
  Country: US (occurrence: None)
  Receive Date: 20130305
  Receipt Date: 20130305
  Transmission Date: 20140127
  Serious: Yes (Other)
  Sender: FDA-Public Use
  Company Number: 163-21880-12020350

PATIENT
  Sex: 0

DRUGS (9)
  1. REVLIMID (LENALIDOMIDE) (5 MILLIGRAM) [Suspect]
     Indication: PLASMA CELL MYELOMA
     Dates: start: 20110909, end: 201201
  2. BACTRIM DS (BACTRIM) (UNKNOWN) [Concomitant]
  3. PEPCID(FAMOTIDINE)(UNKNOWN) [Concomitant]
  4. FLOMAX(TAMSULOSIN HYDROCHLORIDE)(UNKNOWN) [Concomitant]
  5. NOVOLOG(INSULIN ASPART)(UNKNOWN) [Concomitant]
  6. ACYCLOVIR(ACICLOVIR)(UNKNOWN) [Concomitant]
  7. TACROLIMUS(TACROLIMUS)(UNKNOWN) [Concomitant]
  8. FOLIC ACID(FOLIC ACID)(UNKNOWN) [Concomitant]
  9. ZITHROMAX(AZITHROMYCIN)(UNKNOWN) [Concomitant]

REACTIONS (1)
  - Neutrophil count decreased [None]
